FAERS Safety Report 6034580-X (Version None)
Quarter: 2009Q1

REPORT INFORMATION
  Report Type: 
  Country: None (occurrence: None)
  Receive Date: 20090112
  Receipt Date: 20090108
  Transmission Date: 20090719
  Serious: Yes (Death)
  Sender: FDA-Public Use
  Company Number: US-GILEAD-2009-0019771

PATIENT
  Sex: Male

DRUGS (10)
  1. LETAIRIS [Suspect]
     Indication: PULMONARY ARTERIAL HYPERTENSION
     Route: 048
     Dates: start: 20080405, end: 20090103
  2. PREDNISONE TAB [Concomitant]
  3. FUROSEMIDE [Concomitant]
  4. CARTIA XT [Concomitant]
  5. NEXIUM [Concomitant]
  6. FLOVENT [Concomitant]
  7. SPIRIVA [Concomitant]
  8. ADVAIR DISKUS 250/50 [Concomitant]
  9. DIOVAN [Concomitant]
  10. XOPENEX [Concomitant]

REACTIONS (1)
  - DEATH [None]
